FAERS Safety Report 14228342 (Version 1)
Quarter: 2017Q4

REPORT INFORMATION
  Report Type: Spontaneous
  Country: US (occurrence: None)
  Receive Date: 20171124
  Receipt Date: 20171124
  Transmission Date: 20180321
  Serious: No
  Sender: FDA-Public Use
  Company Number: None

PATIENT
  Age: 63 Year
  Sex: Female

DRUGS (1)
  1. VIEKIRA PAK [Suspect]
     Active Substance: DASABUVIR\OMBITASVIR\PARITAPREVIR\RITONAVIR
     Indication: CHRONIC HEPATITIS C
     Dosage: 2 PINK TABLETS / 1 BEIGE TABLET IN AM / IN AM AND PM BY MOUTH
     Route: 048
     Dates: start: 20170922

REACTIONS (2)
  - Drug interaction [None]
  - Nausea [None]

NARRATIVE: CASE EVENT DATE: 20170922
